FAERS Safety Report 4790511-1 (Version None)
Quarter: 2005Q3

REPORT INFORMATION
  Report Type: 
  Country: None (occurrence: None)
  Receive Date: 20050914
  Receipt Date: 20050103
  Transmission Date: 20060218
  Serious: Yes (Death)
  Sender: FDA-Public Use
  Company Number: 163-20785-05010023

PATIENT
  Age: 59 Year
  Sex: Male

DRUGS (6)
  1. THALOMID [Suspect]
     Indication: MULTIPLE MYELOMA
     Dosage: ORAL
     Route: 048
  2. DECADRON [Suspect]
     Indication: MULTIPLE MYELOMA
  3. CISPLATIN [Suspect]
     Indication: MULTIPLE MYELOMA
  4. ADRIAMYCIN PFS [Suspect]
     Indication: MULTIPLE MYELOMA
  5. CYCLOPHOSPHAMIDE [Suspect]
     Indication: MULTIPLE MYELOMA
  6. ETOPOSIDE [Suspect]
     Indication: MULTIPLE MYELOMA

REACTIONS (3)
  - DEATH [None]
  - DISEASE PROGRESSION [None]
  - RENAL FAILURE [None]
